FAERS Safety Report 8795184 (Version 2)
Quarter: 2013Q4

REPORT INFORMATION
  Report Type: Spontaneous
  Country: US (occurrence: US)
  Receive Date: 20120917
  Receipt Date: 20131118
  Transmission Date: 20140711
  Serious: Yes (Death)
  Sender: FDA-Public Use
  Company Number: US-ROCHE-1129221

PATIENT
  Age: 70 Year
  Sex: Female
  Weight: 89 kg

DRUGS (20)
  1. AVASTIN [Suspect]
     Indication: MALIGNANT MELANOMA
     Dosage: DOSE RECEIVED: 06/MAY/2010
     Route: 042
     Dates: start: 20100422
  2. AVASTIN [Suspect]
     Indication: BONE CANCER
     Dosage: DOSE RECEIVED : 03/JUN/2010
     Route: 041
     Dates: start: 20100520
  3. AVASTIN [Suspect]
     Indication: RETROPERITONEAL CANCER
     Dosage: DOASE RECEIVED: 01/JUL/2010
     Route: 041
     Dates: start: 20100617
  4. AVASTIN [Suspect]
     Dosage: DOSE RECEIVED: 02/AUG/2010
     Route: 041
     Dates: start: 20100719
  5. AVASTIN [Suspect]
     Dosage: DOSE RECEIVED: 02/SEP/2010
     Route: 041
     Dates: start: 20100819
  6. DEXAMETHASONE [Concomitant]
     Route: 042
     Dates: start: 20100422
  7. DEXAMETHASONE [Concomitant]
     Route: 048
  8. TAXOL [Concomitant]
     Route: 042
     Dates: start: 20100422
  9. CARBOPLATIN [Concomitant]
     Dosage: 6 AUC
     Route: 042
     Dates: start: 20100422
  10. CARBOPLATIN [Concomitant]
     Dosage: 6 AUC
     Route: 042
     Dates: start: 20100520
  11. CARBOPLATIN [Concomitant]
     Dosage: 6 AUC
     Route: 042
     Dates: start: 20100617
  12. CARBOPLATIN [Concomitant]
     Dosage: 6 AUC
     Route: 042
     Dates: start: 20100719
  13. CARBOPLATIN [Concomitant]
     Dosage: 6 AUC
     Route: 042
     Dates: start: 20100619
  14. BENADRYL (UNITED STATES) [Concomitant]
     Dosage: DOSE RECEICED: 29/APR/2010, 06/MAY/2010, 27/MAY/2010, 03/JUN/2010, 24/JUN/2010, 01/JUL/2010, 26/JUL/
     Route: 041
     Dates: start: 20100422
  15. BENADRYL (UNITED STATES) [Concomitant]
     Dosage: DOSE RECEIVED: 17/JUN/2010, 19/JUL/2010
     Route: 041
     Dates: start: 20100520
  16. ZANTAC [Concomitant]
     Route: 041
  17. KYTRIL [Concomitant]
     Dosage: DOSE RECEIVED: 20/MAY/2010, 17/JUN/2010, 19/JUL/2010, 19/AUG/2010
     Route: 042
     Dates: start: 20100422
  18. PROCHLORPERAZINE [Concomitant]
     Route: 048
  19. LORAZEPAM [Concomitant]
     Route: 042
  20. PEPCID [Concomitant]
     Dosage: DOSE RECEIVED: 29/APR/2013, 06/MAY/2010, 20/MAY/2010, 27/MAY/2010, 03/JUN/2010, 17/JUN/2010, 24/JUN/
     Route: 042

REACTIONS (3)
  - Death [Fatal]
  - Decreased appetite [Unknown]
  - Fatigue [Unknown]
